FAERS Safety Report 6431346-3 (Version None)
Quarter: 2009Q4

REPORT INFORMATION
  Report Type: 
  Country: None (occurrence: None)
  Receive Date: 20091106
  Receipt Date: 20091028
  Transmission Date: 20100525
  Serious: Yes (Hospitalization)
  Sender: FDA-Public Use
  Company Number: FR-WYE-H12011209

PATIENT
  Sex: Female

DRUGS (6)
  1. CORDARONE [Suspect]
     Indication: ARRHYTHMIA
     Route: 048
     Dates: end: 20090328
  2. TRANSIPEG [Concomitant]
     Indication: CONSTIPATION
     Dosage: UNKNOWN
     Route: 048
  3. DOLIPRANE [Concomitant]
     Indication: ARTHRALGIA
     Dosage: UNKNOWN
     Route: 048
  4. TRIATEC [Suspect]
     Indication: HYPERTENSION
     Dosage: 2.5 MG IN THE MORNING AND 1.25 MG IN THE EVENING
     Route: 048
     Dates: end: 20090328
  5. TRIATEC [Suspect]
     Route: 048
     Dates: start: 20090329
  6. PREVISCAN [Concomitant]
     Indication: ARRHYTHMIA
     Route: 048

REACTIONS (2)
  - HYPERKALAEMIA [None]
  - RENAL FAILURE ACUTE [None]
